FAERS Safety Report 19794671 (Version 2)
Quarter: 2021Q4

REPORT INFORMATION
  Report Type: Report from Study
  Country: US (occurrence: US)
  Receive Date: 20210907
  Receipt Date: 20211118
  Transmission Date: 20220303
  Serious: Yes (Other)
  Sender: FDA-Public Use
  Company Number: US-NOVARTISPH-NVSC2021US197171

PATIENT
  Sex: Female

DRUGS (1)
  1. ENTRESTO [Suspect]
     Active Substance: SACUBITRIL\VALSARTAN
     Indication: Product used for unknown indication
     Dosage: 1 DF, BID
     Route: 048
     Dates: start: 20210728

REACTIONS (6)
  - Hepatic enzyme increased [Unknown]
  - Dizziness [Recovering/Resolving]
  - Skin discolouration [Not Recovered/Not Resolved]
  - Fluid retention [Not Recovered/Not Resolved]
  - Dehydration [Not Recovered/Not Resolved]
  - Flatulence [Not Recovered/Not Resolved]
